FAERS Safety Report 4883193-1 (Version None)
Quarter: 2006Q1

REPORT INFORMATION
  Report Type: 
  Country: None (occurrence: None)
  Receive Date: 20060118
  Receipt Date: 20051223
  Transmission Date: 20060701
  Serious: Yes (Life-Threatening, Hospitalization, Other)
  Sender: FDA-Public Use
  Company Number: 2005GB02489

PATIENT
  Age: 21568 Day
  Sex: Female
  Weight: 77 kg

DRUGS (1)
  1. LISINOPRIL [Suspect]
     Indication: HYPERTENSION
     Route: 048
     Dates: start: 20010504

REACTIONS (2)
  - CROUP INFECTIOUS [None]
  - UPPER RESPIRATORY TRACT INFECTION [None]
